FAERS Safety Report 24902953 (Version 2)
Quarter: 2025Q1

REPORT INFORMATION
  Report Type: Report from Study
  Country: US (occurrence: US)
  Receive Date: 20250130
  Receipt Date: 20250308
  Transmission Date: 20250409
  Serious: Yes (Other)
  Sender: ABBVIE
  Company Number: US-ABBVIE-6105395

PATIENT
  Age: 42 Year
  Sex: Male

DRUGS (4)
  1. HUMIRA [Suspect]
     Active Substance: ADALIMUMAB
     Indication: Hidradenitis
     Route: 058
     Dates: start: 20150115
  2. LITHIUM [Concomitant]
     Active Substance: LITHIUM
     Indication: Bipolar disorder
     Dates: start: 20151001
  3. KLONOPIN [Concomitant]
     Active Substance: CLONAZEPAM
     Indication: Bipolar disorder
     Dates: start: 20030115
  4. PROPRANOLOL [Concomitant]
     Active Substance: PROPRANOLOL HYDROCHLORIDE
     Indication: Blood pressure measurement
     Dates: start: 20150115

REACTIONS (4)
  - Osteonecrosis [Unknown]
  - Injection site haemorrhage [Unknown]
  - Craniofacial fracture [Unknown]
  - Device issue [Not Recovered/Not Resolved]

NARRATIVE: CASE EVENT DATE: 20250108
